FAERS Safety Report 4730220-8 (Version None)
Quarter: 2005Q3

REPORT INFORMATION
  Report Type: 
  Country: None (occurrence: None)
  Receive Date: 20050801
  Receipt Date: 20050329
  Transmission Date: 20060218
  Serious: Yes (Other)
  Sender: FDA-Public Use
  Company Number: 200512527US

PATIENT
  Sex: Male

DRUGS (14)
  1. KETEK [Suspect]
     Indication: SINUSITIS
     Route: 048
     Dates: start: 20040904, end: 20040908
  2. SUDAL [Concomitant]
     Dosage: DOSE: UNK
     Route: 048
  3. NEXIUM [Concomitant]
  4. NEURONTIN [Concomitant]
  5. MOBIC [Concomitant]
  6. LIPITOR [Concomitant]
  7. SINGULAIR [Concomitant]
  8. TOPROL-XL [Concomitant]
  9. CLARINEX [Concomitant]
  10. LOTREL [Concomitant]
     Indication: BLOOD PRESSURE INCREASED
     Dosage: DOSE: 5/20
  11. HYDROCHLOROTHIAZIDE [Concomitant]
  12. SSRI [Concomitant]
  13. VIOXX [Concomitant]
  14. HUMIBID LA [Concomitant]
     Dosage: DOSE: 1 TABLET

REACTIONS (4)
  - CHEST PAIN [None]
  - DIPLOPIA [None]
  - HEADACHE [None]
  - VISION BLURRED [None]
